FAERS Safety Report 16844674 (Version 1)
Quarter: 2019Q4

REPORT INFORMATION
  Report Type: Spontaneous
  Country: US (occurrence: US)
  Receive Date: 20190924
  Receipt Date: 20190924
  Transmission Date: 20200122
  Serious: No
  Sender: FDA-Public Use
  Company Number: None

PATIENT
  Age: 80 Year

DRUGS (1)
  1. PROLIA [Suspect]
     Active Substance: DENOSUMAB
     Indication: OSTEOPOROSIS
     Dosage: 60 MG SUBCUTANEOUS EVERY 6 MONTHS
     Route: 058
     Dates: start: 20190801, end: 20190801

REACTIONS (2)
  - Bone pain [None]
  - Tremor [None]
